FAERS Safety Report 24370518 (Version 1)
Quarter: 2024Q3

REPORT INFORMATION
  Report Type: Report from Study
  Country: FR (occurrence: FR)
  Receive Date: 20240927
  Receipt Date: 20240927
  Transmission Date: 20241017
  Serious: Yes (Hospitalization)
  Sender: JOHNSON AND JOHNSON
  Company Number: US-JNJFOC-20231129793

PATIENT
  Age: 75 Year
  Sex: Female
  Weight: 51 kg

DRUGS (18)
  1. DARZALEX [Suspect]
     Active Substance: DARATUMUMAB
     Indication: Plasma cell myeloma
     Route: 058
     Dates: start: 20230330, end: 20230503
  2. ELRANATAMAB [Suspect]
     Active Substance: ELRANATAMAB
     Indication: Plasma cell myeloma
     Route: 058
     Dates: start: 20230221
  3. ELRANATAMAB [Suspect]
     Active Substance: ELRANATAMAB
     Route: 058
     Dates: start: 20230224, end: 20230224
  4. ELRANATAMAB [Suspect]
     Active Substance: ELRANATAMAB
     Route: 058
     Dates: start: 20230228, end: 20230411
  5. ELRANATAMAB [Suspect]
     Active Substance: ELRANATAMAB
     Route: 058
     Dates: start: 20230417, end: 20230509
  6. CALCIUM PHOSPHATE, DIBASIC, ANHYDROUS\MAGNESIUM GLYCEROPHOSPHATE\PHOSP [Concomitant]
     Active Substance: CALCIUM PHOSPHATE, DIBASIC, ANHYDROUS\MAGNESIUM GLYCEROPHOSPHATE\PHOSPHORIC ACID\SODIUM PHOSPHATE, D
     Indication: Prophylaxis
     Route: 048
     Dates: start: 20230328
  7. POTASSIUM CHLORIDE [Concomitant]
     Active Substance: POTASSIUM CHLORIDE
     Indication: Prophylaxis
     Route: 065
     Dates: start: 20211221
  8. PAROXETINE [Concomitant]
     Active Substance: PAROXETINE
     Indication: Anxiety
     Route: 048
     Dates: start: 20211221
  9. PAROXETINE [Concomitant]
     Active Substance: PAROXETINE
     Indication: Prophylaxis
  10. ERYTHROPOIETIN [Concomitant]
     Active Substance: ERYTHROPOIETIN
     Indication: Anaemia
     Route: 058
     Dates: start: 20230303, end: 20230505
  11. ASPIRIN [Concomitant]
     Active Substance: ASPIRIN
     Indication: Nervous system disorder
     Route: 048
     Dates: start: 20230521, end: 20230906
  12. LEUCOVORIN CALCIUM [Concomitant]
     Active Substance: LEUCOVORIN CALCIUM
     Indication: Prophylaxis
     Route: 048
     Dates: start: 20230312
  13. ESOMEPRAZOLE [Concomitant]
     Active Substance: ESOMEPRAZOLE
     Indication: Gastrooesophageal reflux disease
     Route: 048
     Dates: start: 20211221
  14. CHOLECALCIFEROL [Concomitant]
     Active Substance: CHOLECALCIFEROL
     Indication: Osteoporosis
     Route: 048
     Dates: start: 20211019
  15. BROMAZEPAM [Concomitant]
     Active Substance: BROMAZEPAM
     Indication: Prophylaxis
     Route: 048
     Dates: start: 20211221
  16. LEVOFLOXACIN [Concomitant]
     Active Substance: LEVOFLOXACIN
     Indication: Thrombosis prophylaxis
     Route: 058
     Dates: start: 20230327
  17. CHOLESTYRAMINE [Concomitant]
     Active Substance: CHOLESTYRAMINE
     Indication: Prophylaxis
     Route: 048
     Dates: start: 20230303
  18. VALACYCLOVIR HYDROCHLORIDE [Concomitant]
     Active Substance: VALACYCLOVIR HYDROCHLORIDE
     Indication: Infection prophylaxis
     Route: 048
     Dates: start: 20210219

REACTIONS (1)
  - Cerebrovascular accident [Recovered/Resolved]

NARRATIVE: CASE EVENT DATE: 20230521
